FAERS Safety Report 7565935-X (Version None)
Quarter: 2011Q2

REPORT INFORMATION
  Report Type: 
  Country: None (occurrence: None)
  Receive Date: 20110623
  Receipt Date: 20110622
  Transmission Date: 20111010
  Serious: Yes (Hospitalization, Other)
  Sender: FDA-Public Use
  Company Number: US-ELI_LILLY_AND_COMPANY-US201002003677

PATIENT
  Sex: Female
  Weight: 106.58 kg

DRUGS (12)
  1. METFORMIN HCL [Concomitant]
     Indication: DIABETES MELLITUS
     Dosage: UNK, UNK
     Dates: start: 20000101
  2. INTELENCE [Concomitant]
     Indication: HIV INFECTION
     Dates: start: 20080418
  3. NOVOLOG [Concomitant]
     Indication: DIABETES MELLITUS
     Dates: start: 20070529, end: 20090225
  4. TYLENOL                                 /SCH/ [Concomitant]
  5. TORSEMIDE [Concomitant]
     Indication: OEDEMA
     Dates: start: 20050525
  6. WELLBUTRIN [Concomitant]
     Indication: DEPRESSION
     Dates: start: 20030509
  7. LANTUS [Concomitant]
     Indication: DIABETES MELLITUS
     Dates: start: 20070529, end: 20100211
  8. LIPITOR [Concomitant]
     Indication: BLOOD CHOLESTEROL INCREASED
     Dates: start: 20070830
  9. SPIRONOLACTONE [Concomitant]
     Indication: OEDEMA
     Dates: start: 20050930
  10. TRUVADA [Concomitant]
     Indication: HIV INFECTION
     Dates: start: 20061101
  11. ISENTRESS [Concomitant]
     Indication: HIV INFECTION
     Dates: start: 20071214
  12. BYETTA [Suspect]
     Dosage: UNK, UNKNOWN
     Route: 065
     Dates: start: 20061001, end: 20090201

REACTIONS (3)
  - OFF LABEL USE [None]
  - CHOLELITHIASIS [None]
  - PANCREATITIS [None]
